FAERS Safety Report 6150959-X (Version None)
Quarter: 2009Q2

REPORT INFORMATION
  Report Type: 
  Country: None (occurrence: None)
  Receive Date: 20090410
  Receipt Date: 20090330
  Transmission Date: 20091009
  Serious: Yes (Hospitalization)
  Sender: FDA-Public Use
  Company Number: KW-RANBAXY-2009RR-23181

PATIENT
  Age: 20 Year
  Sex: Female

DRUGS (1)
  1. METFORMIN HCL [Suspect]
     Indication: WEIGHT DECREASED

REACTIONS (3)
  - DRUG ABUSE [None]
  - LACTIC ACIDOSIS [None]
  - RENAL FAILURE ACUTE [None]
